FAERS Safety Report 4342120-6 (Version None)
Quarter: 2004Q2

REPORT INFORMATION
  Report Type: 
  Country: None (occurrence: None)
  Receive Date: 20040409
  Receipt Date: 20030917
  Transmission Date: 20050107
  Serious: Yes (Death, Hospitalization)
  Sender: FDA-Public Use
  Company Number: 03P-163-0230435-00

PATIENT
  Age: 51 Year
  Sex: Male
  Weight: 85.7298 kg

DRUGS (1)
  1. DEPAKOTE [Suspect]
     Indication: BIPOLAR DISORDER
     Dosage: 500 MG, 2 IN 1 D, PER ORAL; 250 MG, 3 IN 1 D, PER ORAL
     Route: 048
     Dates: start: 20010914

REACTIONS (2)
  - HEPATIC ENZYME INCREASED [None]
  - TRANSAMINASES INCREASED [None]
